FAERS Safety Report 22338527 (Version 1)
Quarter: 2023Q2

REPORT INFORMATION
  Report Type: Spontaneous
  Country: US (occurrence: US)
  Receive Date: 20230518
  Receipt Date: 20230518
  Transmission Date: 20230722
  Serious: Yes (Hospitalization)
  Sender: FDA-Public Use
  Company Number: US-SA-SAC20230518000160

PATIENT
  Age: 10 Year
  Sex: Male

DRUGS (1)
  1. DUPIXENT [Suspect]
     Active Substance: DUPILUMAB
     Dosage: 200 MG,FREQUENCY: OTHER
     Route: 058

REACTIONS (4)
  - Abdominal pain [Unknown]
  - Blood glucose increased [Recovered/Resolved]
  - Polydipsia [Unknown]
  - Enuresis [Unknown]

NARRATIVE: CASE EVENT DATE: 20230101
